FAERS Safety Report 6663599-0 (Version None)
Quarter: 2010Q2

REPORT INFORMATION
  Report Type: 
  Country: None (occurrence: None)
  Receive Date: 20100401
  Receipt Date: 20100324
  Transmission Date: 20101027
  Serious: Yes (Hospitalization)
  Sender: FDA-Public Use
  Company Number: US-SANOFI-AVENTIS-2010SA012742

PATIENT
  Age: 70 Year
  Sex: Male
  Weight: 66.4 kg

DRUGS (13)
  1. BLINDED THERAPY [Suspect]
     Route: 042
     Dates: start: 20091016, end: 20091016
  2. BLINDED THERAPY [Suspect]
     Route: 042
     Dates: start: 20100108, end: 20100108
  3. DOCETAXEL [Suspect]
     Route: 042
     Dates: start: 20091016, end: 20091016
  4. DOCETAXEL [Suspect]
     Route: 042
     Dates: start: 20100108, end: 20100108
  5. PREDNISONE TAB [Suspect]
     Route: 048
     Dates: start: 20091016, end: 20100117
  6. LUPRON [Concomitant]
     Indication: HORMONE THERAPY
     Dates: start: 20000401
  7. NYSTATIN [Concomitant]
  8. FLUCONAZOLE [Concomitant]
  9. AMITRIPTYLINE [Concomitant]
  10. RANITIDINE [Concomitant]
  11. CELEBREX [Concomitant]
     Dates: start: 20090925
  12. HYDROCODONE [Concomitant]
     Dates: start: 20091007
  13. NORFLEX [Concomitant]
     Dates: start: 20091007

REACTIONS (1)
  - OESOPHAGEAL ULCER [None]
